FAERS Safety Report 10996772 (Version 1)
Quarter: 2015Q2

REPORT INFORMATION
  Report Type: Spontaneous
  Country: US (occurrence: None)
  Receive Date: 20150407
  Receipt Date: 20150407
  Transmission Date: 20150821
  Serious: Yes (Life-Threatening, Hospitalization, Disabling)
  Sender: FDA-Public Use
  Company Number: None

PATIENT
  Age: 47 Year

DRUGS (12)
  1. HUMALOG [Concomitant]
     Active Substance: INSULIN LISPRO
  2. MATRAZEPIEN [Concomitant]
  3. FOLIC ACID. [Concomitant]
     Active Substance: FOLIC ACID
  4. DILADID [Concomitant]
  5. BYETTA [Suspect]
     Active Substance: EXENATIDE
     Indication: DIABETES MELLITUS
     Dosage: 10 UNITS THEN 5 UNITS THEN 10
     Route: 030
  6. TESTOSTERONE. [Concomitant]
     Active Substance: TESTOSTERONE
  7. LANTUS [Concomitant]
     Active Substance: INSULIN GLARGINE
  8. VITAMIN D [Concomitant]
     Active Substance: CHOLECALCIFEROL
  9. VITAMIN B12 [Concomitant]
     Active Substance: CYANOCOBALAMIN
  10. XANAX [Concomitant]
     Active Substance: ALPRAZOLAM
  11. BYETTA [Suspect]
     Active Substance: EXENATIDE
     Indication: WEIGHT CONTROL
     Dosage: 10 UNITS THEN 5 UNITS THEN 10
     Route: 030
  12. PROTONIX [Concomitant]
     Active Substance: PANTOPRAZOLE SODIUM

REACTIONS (6)
  - Pancreatic carcinoma [None]
  - Drug ineffective [None]
  - Adverse drug reaction [None]
  - Pneumonia [None]
  - Anxiety [None]
  - Fear [None]

NARRATIVE: CASE EVENT DATE: 20110221
